FAERS Safety Report 18279841 (Version 1)
Quarter: 2020Q3

REPORT INFORMATION
  Report Type: Spontaneous
  Country: IT (occurrence: IT)
  Receive Date: 20200917
  Receipt Date: 20200917
  Transmission Date: 20201103
  Serious: Yes (Other)
  Sender: FDA-Public Use
  Company Number: NVSC2020IT205550

PATIENT
  Age: 58 Year
  Sex: Female

DRUGS (1)
  1. VOTRIENT [Suspect]
     Active Substance: PAZOPANIB HYDROCHLORIDE
     Indication: SOFT TISSUE NEOPLASM
     Dosage: 800 MG, QD
     Route: 048
     Dates: start: 20200513

REACTIONS (5)
  - Hypertransaminasaemia [Recovering/Resolving]
  - Blood bilirubin [Recovering/Resolving]
  - Hyperbilirubinaemia [Recovering/Resolving]
  - Transaminases [Recovering/Resolving]
  - Bilirubin conjugated [Recovering/Resolving]

NARRATIVE: CASE EVENT DATE: 20200609
